FAERS Safety Report 9018294 (Version 1)
Quarter: 2013Q1

REPORT INFORMATION
  Report Type: Spontaneous
  Country: US (occurrence: None)
  Receive Date: 20130111
  Receipt Date: 20130111
  Transmission Date: 20140127
  Serious: No
  Sender: FDA-Public Use
  Company Number: None

PATIENT
  Age: 77 Year
  Sex: Male

DRUGS (1)
  1. LEVAQUIN [Suspect]
     Dates: start: 20121121, end: 20121201

REACTIONS (6)
  - Drug hypersensitivity [None]
  - Groin pain [None]
  - Gait disturbance [None]
  - Muscle swelling [None]
  - Tendon disorder [None]
  - Swelling [None]
